FAERS Safety Report 8788802 (Version 1)
Quarter: 2012Q4

REPORT INFORMATION
  Report Type: 
  Country: CH (occurrence: CH)
  Receive Date: 20120915
  Receipt Date: 20120915
  Transmission Date: 20130627
  Serious: Yes (Hospitalization, Other)
  Sender: FDA-Public Use
  Company Number: CH-ABBOTT-12P-151-0979481-00

PATIENT
  Age: 61 Year
  Sex: Male

DRUGS (6)
  1. VALPROIC ACID [Suspect]
     Indication: STATUS EPILEPTICUS
  2. LEVETIRACETAM [Suspect]
     Indication: STATUS EPILEPTICUS
  3. LORAZEPAM [Suspect]
     Indication: STATUS EPILEPTICUS
  4. MIDAZOLAM [Suspect]
     Indication: STATUS EPILEPTICUS
  5. TOPIRAMATE [Suspect]
     Indication: STATUS EPILEPTICUS
  6. PROPOFOL [Concomitant]
     Indication: STATUS EPILEPTICUS

REACTIONS (2)
  - Acidosis hyperchloraemic [Unknown]
  - Drug ineffective [Unknown]
